FAERS Safety Report 9844538 (Version 1)
Quarter: 2014Q1

REPORT INFORMATION
  Report Type: Spontaneous
  Country: US (occurrence: None)
  Receive Date: 20140123
  Receipt Date: 20140123
  Transmission Date: 20141002
  Serious: Yes (Hospitalization)
  Sender: FDA-Public Use
  Company Number: AUR-APL-2014-00368

PATIENT
  Age: 62 Year
  Sex: Male

DRUGS (14)
  1. OXYCODONE [Suspect]
     Indication: PAIN
     Route: 048
  2. TRAZODONE [Suspect]
     Indication: INSOMNIA
     Route: 048
  3. BUPROPION [Suspect]
     Indication: PRODUCT USED FOR UNKNOWN INDICATION
     Dosage: 150 MG BID
     Route: 048
  4. TRAMADOL [Concomitant]
     Indication: PAIN
     Dosage: 200 MG (50 MG 1 IN 6 HRS)?
     Route: 048
  5. LORAZEPAM (LORAZEPAM) [Concomitant]
  6. HEPARIN (HEPARIN) [Concomitant]
  7. RANITIDINE (RANITIDINE) [Concomitant]
  8. DOCUSATE (DOCUSATE) [Concomitant]
  9. ACETAMINOPHEN (PARACETAMOL) [Concomitant]
  10. POLYETHYLENE GLYCOL(MACROGOL) [Concomitant]
  11. CALCIUM (CALCIUM) [Concomitant]
  12. VITAMIN D (ERGOCALCIFEROL) [Concomitant]
  13. THIAMINE (THIAMINE) [Concomitant]
  14. FOLATE (FOLIC ACID) [Concomitant]

REACTIONS (11)
  - Serotonin syndrome [None]
  - Urinary incontinence [None]
  - Diarrhoea [None]
  - Hallucination, visual [None]
  - Toxicity to various agents [None]
  - Drug interaction [None]
  - Alcohol withdrawal syndrome [None]
  - Anaemia macrocytic [None]
  - Leukocytosis [None]
  - Anxiety [None]
  - Hyponatraemia [None]
